FAERS Safety Report 5441398-5 (Version None)
Quarter: 2007Q3

REPORT INFORMATION
  Report Type: 
  Country: None (occurrence: None)
  Receive Date: 20070830
  Receipt Date: 20070830
  Transmission Date: 20080115
  Serious: No
  Sender: FDA-Public Use
  Company Number: None

PATIENT
  Sex: Female

DRUGS (1)
  1. EPIPEN [Suspect]
     Indication: HYPERSENSITIVITY
     Dosage: 0.3
     Dates: start: 20070621

REACTIONS (2)
  - ACCIDENTAL NEEDLE STICK [None]
  - MEDICATION ERROR [None]
